FAERS Safety Report 9200483 (Version 4)
Quarter: 2013Q2

REPORT INFORMATION
  Report Type: Spontaneous
  Country: CA (occurrence: CA)
  Receive Date: 20130329
  Receipt Date: 20130604
  Transmission Date: 20140414
  Serious: Yes (Hospitalization, Other)
  Sender: FDA-Public Use
  Company Number: CA-AMGEN-CANSP2013021685

PATIENT
  Age: 39 Year
  Sex: Male

DRUGS (2)
  1. ENBREL [Suspect]
     Indication: PSORIATIC ARTHROPATHY
     Dosage: 50 MG, QWK
     Route: 058
     Dates: start: 20130220, end: 20130410
  2. NEORAL [Concomitant]
     Dosage: 225 MG, QD
     Dates: end: 20130325

REACTIONS (11)
  - Urticaria [Unknown]
  - Local swelling [Unknown]
  - Respiratory disorder [Recovered/Resolved]
  - Local swelling [Recovered/Resolved]
  - Lower respiratory tract inflammation [Recovered/Resolved]
  - Gait disturbance [Recovered/Resolved]
  - Anaphylactic reaction [Unknown]
  - Drug hypersensitivity [Unknown]
  - Angioedema [Unknown]
  - Drug ineffective [Recovered/Resolved]
  - Papule [Unknown]
